FAERS Safety Report 14272122 (Version 1)
Quarter: 2017Q4

REPORT INFORMATION
  Report Type: Spontaneous
  Country: US (occurrence: US)
  Receive Date: 20171211
  Receipt Date: 20171211
  Transmission Date: 20180321
  Serious: No
  Sender: FDA-Public Use
  Company Number: US-ACTELION-A-US2017-163903

PATIENT
  Age: 71 Year
  Sex: Female

DRUGS (13)
  1. POTASSIUM CHLORIDE. [Concomitant]
     Active Substance: POTASSIUM CHLORIDE
  2. METOLAZONE. [Concomitant]
     Active Substance: METOLAZONE
  3. DULERA [Concomitant]
     Active Substance: FORMOTEROL FUMARATE DIHYDRATE\MOMETASONE FUROATE
  4. ADCIRCA [Concomitant]
     Active Substance: TADALAFIL
  5. TIZANIDINE. [Concomitant]
     Active Substance: TIZANIDINE
  6. XANAX [Concomitant]
     Active Substance: ALPRAZOLAM
  7. HYDROCODONE BITARTRATE AND ACETAMINOPHEN [Concomitant]
     Active Substance: ACETAMINOPHEN\HYDROCODONE BITARTRATE
  8. PANTOPRAZOLE [Concomitant]
     Active Substance: PANTOPRAZOLE
  9. METFORMIN [Concomitant]
     Active Substance: METFORMIN HYDROCHLORIDE
     Indication: ESSENTIAL HYPERTENSION
  10. FUROSEMIDE. [Concomitant]
     Active Substance: FUROSEMIDE
  11. OPSUMIT [Suspect]
     Active Substance: MACITENTAN
     Indication: PULMONARY ARTERIAL HYPERTENSION
     Dosage: 10 MG, QD
     Route: 048
  12. XARELTO [Concomitant]
     Active Substance: RIVAROXABAN
  13. METOPROLOL SUCCINATE. [Concomitant]
     Active Substance: METOPROLOL SUCCINATE

REACTIONS (3)
  - Kidney infection [Not Recovered/Not Resolved]
  - Sinus disorder [Unknown]
  - Fluid retention [Unknown]
